FAERS Safety Report 15221514 (Version 1)
Quarter: 2018Q3

REPORT INFORMATION
  Report Type: Report from Study
  Country: US (occurrence: US)
  Receive Date: 20180731
  Receipt Date: 20180731
  Transmission Date: 20181010
  Serious: Yes (Hospitalization)
  Sender: FDA-Public Use
  Company Number: US-ROCHE-2159708

PATIENT
  Age: 45 Year
  Sex: Male
  Weight: 73.4 kg

DRUGS (10)
  1. BEVACIZUMAB. [Suspect]
     Active Substance: BEVACIZUMAB
     Indication: COLORECTAL CANCER
     Dosage: ON 11/JUN/2018, LAST DOSE OF BEVACIZUMAB WAS ADMINISTERED.
     Route: 042
     Dates: start: 20180502
  2. GLUCOSE [Concomitant]
     Active Substance: DEXTROSE
     Route: 065
  3. FLUOROURACIL. [Concomitant]
     Active Substance: FLUOROURACIL
     Route: 065
     Dates: start: 201602, end: 201610
  4. CAPECITABINE. [Suspect]
     Active Substance: CAPECITABINE
     Route: 048
     Dates: start: 2014, end: 201412
  5. IRINOTECAN [Concomitant]
     Active Substance: IRINOTECAN
     Route: 065
     Dates: start: 201602, end: 201610
  6. ALBUTEROL. [Concomitant]
     Active Substance: ALBUTEROL
  7. INSULINE [Concomitant]
     Active Substance: INSULIN NOS
  8. BLINDED ATEZOLIZUMAB [Suspect]
     Active Substance: ATEZOLIZUMAB
     Indication: COLORECTAL CANCER
     Dosage: ON 11/JUN/2018, LAST DOSE OF ATEZOLIZUMAB WAS ADMINISTERED.
     Route: 042
     Dates: start: 20180502
  9. CAPECITABINE. [Suspect]
     Active Substance: CAPECITABINE
     Indication: COLORECTAL CANCER
     Dosage: ON 24/JUN/2018, LAST DOSE OF CAPECITABINE WAS ADMINISTERED.
     Route: 048
     Dates: start: 20180502
  10. FOLINIC ACID [Concomitant]
     Active Substance: LEUCOVORIN
     Route: 065
     Dates: start: 201602, end: 201610

REACTIONS (2)
  - Hyperkalaemia [Recovered/Resolved]
  - Acute kidney injury [Recovered/Resolved]

NARRATIVE: CASE EVENT DATE: 20180709
